FAERS Safety Report 9625063 (Version 1)
Quarter: 2013Q4

REPORT INFORMATION
  Report Type: Spontaneous
  Country: US (occurrence: None)
  Receive Date: 20131010
  Receipt Date: 20131010
  Transmission Date: 20140711
  Serious: Yes (Other)
  Sender: FDA-Public Use
  Company Number: US-DEXPHARM-20130691

PATIENT
  Sex: Male

DRUGS (3)
  1. OMEPRAZOLE DELAYED RELEASE TABLETS 20 MG [Suspect]
     Indication: GASTROOESOPHAGEAL REFLUX DISEASE
     Dosage: 20 MG ONCE A DAY, ORAL
     Route: 048
     Dates: start: 2008
  2. LOSARTAN POTASSIUM [Concomitant]
  3. AMLODIPINE BESYLATE [Concomitant]

REACTIONS (3)
  - Carpal tunnel syndrome [None]
  - Hypoaesthesia [None]
  - Pain in extremity [None]
